FAERS Safety Report 7545792-8 (Version None)
Quarter: 2011Q2

REPORT INFORMATION
  Report Type: 
  Country: None (occurrence: None)
  Receive Date: 20110614
  Receipt Date: 20110607
  Transmission Date: 20111010
  Serious: Yes (Hospitalization)
  Sender: FDA-Public Use
  Company Number: US-SANOFI-AVENTIS-2011SA030028

PATIENT
  Age: 76 Year
  Sex: Female
  Weight: 45 kg

DRUGS (7)
  1. DIGOXIN [Concomitant]
  2. CARDIAZEM [Concomitant]
  3. ALTACE [Concomitant]
  4. MULTAQ [Suspect]
     Indication: ATRIAL FIBRILLATION
     Route: 048
     Dates: start: 20110323, end: 20110328
  5. COREG [Concomitant]
     Route: 048
  6. DABIGATRAN ETEXILATE [Suspect]
     Route: 065
     Dates: end: 20110323
  7. LASIX [Concomitant]
     Route: 065

REACTIONS (3)
  - ACTIVATED PARTIAL THROMBOPLASTIN TIME PROLONGED [None]
  - INTERNATIONAL NORMALISED RATIO INCREASED [None]
  - GASTROINTESTINAL HAEMORRHAGE [None]
